FAERS Safety Report 4779029-X (Version None)
Quarter: 2005Q3

REPORT INFORMATION
  Report Type: 
  Country: None (occurrence: None)
  Receive Date: 20050926
  Receipt Date: 20050815
  Transmission Date: 20060218
  Serious: Yes (Hospitalization)
  Sender: FDA-Public Use
  Company Number: US-ABBOTT-05P-163-0308367-00

PATIENT
  Sex: Male
  Weight: 82.174 kg

DRUGS (8)
  1. HUMIRA [Suspect]
     Indication: RHEUMATOID ARTHRITIS
     Route: 058
     Dates: start: 20020801, end: 20050501
  2. HUMIRA [Suspect]
     Route: 058
     Dates: start: 20020801, end: 20050501
  3. DURAGESIC-100 [Concomitant]
     Indication: RHEUMATOID ARTHRITIS
     Route: 062
     Dates: end: 20050601
  4. DURAGESIC-100 [Concomitant]
     Indication: LUMBAR SPINAL STENOSIS
  5. MORPHINE [Concomitant]
     Indication: BACK INJURY
     Route: 048
  6. MORPHINE [Concomitant]
     Indication: DIABETIC NEUROPATHY
     Route: 048
  7. MORPHINE [Concomitant]
     Indication: SPINAL LAMINECTOMY
  8. MORPHINE [Concomitant]
     Indication: VERTEBRAL INJURY

REACTIONS (6)
  - ASTHENIA [None]
  - PNEUMONIA [None]
  - PNEUMONIA ASPIRATION [None]
  - RHEUMATOID ARTHRITIS [None]
  - THERAPEUTIC RESPONSE UNEXPECTED [None]
  - WEIGHT DECREASED [None]
